FAERS Safety Report 4733188-3 (Version None)
Quarter: 2005Q3

REPORT INFORMATION
  Report Type: 
  Country: None (occurrence: None)
  Receive Date: 20050801
  Receipt Date: 20050721
  Transmission Date: 20060218
  Serious: Yes (Hospitalization)
  Sender: FDA-Public Use
  Company Number: 2005AL002863

PATIENT
  Age: 46 Year
  Sex: Male

DRUGS (3)
  1. SERAX [Suspect]
     Indication: PERSECUTORY DELUSION
     Dosage: 150 MG; QD; PO
     Route: 048
     Dates: start: 20050530, end: 20050608
  2. ABILIFY [Suspect]
     Indication: PERSECUTORY DELUSION
     Dosage: 15 MG ;QD; PO
     Route: 048
     Dates: start: 20050530, end: 20050608
  3. NOCTRAN 10 ({NULL}) [Suspect]
     Indication: PERSECUTORY DELUSION
     Dosage: QD; PO
     Route: 048
     Dates: start: 20050530, end: 20050608

REACTIONS (2)
  - RASH PAPULAR [None]
  - RASH PRURITIC [None]
